FAERS Safety Report 5941124-7 (Version None)
Quarter: 2008Q4

REPORT INFORMATION
  Report Type: 
  Country: None (occurrence: None)
  Receive Date: 20081104
  Receipt Date: 20081023
  Transmission Date: 20090506
  Serious: Yes (Hospitalization)
  Sender: FDA-Public Use
  Company Number: DE-PFIZER INC-2008090549

PATIENT
  Age: 45 Year
  Sex: Female

DRUGS (1)
  1. SOBELIN [Suspect]
     Indication: MASTITIS
     Route: 048
     Dates: start: 20080807, end: 20080817

REACTIONS (4)
  - ANAEMIA [None]
  - GASTROENTERITIS [None]
  - PSEUDOMEMBRANOUS COLITIS [None]
  - URINARY TRACT INFECTION [None]
